FAERS Safety Report 4380242-4 (Version None)
Quarter: 2004Q2

REPORT INFORMATION
  Report Type: 
  Country: None (occurrence: None)
  Receive Date: 20040616
  Receipt Date: 20040616
  Transmission Date: 20050107
  Serious: Yes (Disabling)
  Sender: FDA-Public Use
  Company Number: None

PATIENT
  Age: 72 Year
  Sex: Female
  Weight: 81.6475 kg

DRUGS (4)
  1. FEMARA [Suspect]
     Indication: BREAST CANCER
     Dosage: ONE TABLET DAY ORAL
     Route: 048
     Dates: start: 20040115, end: 20040430
  2. MULTI-VITAMINS [Concomitant]
  3. GLAUCOMA EYE DROPS [Concomitant]
  4. LOSARTIN [Concomitant]

REACTIONS (5)
  - BONE PAIN [None]
  - CONTUSION [None]
  - FALL [None]
  - MUSCULAR WEAKNESS [None]
  - MYALGIA [None]
